FAERS Safety Report 6226277-8 (Version None)
Quarter: 2009Q2

REPORT INFORMATION
  Report Type: 
  Country: None (occurrence: None)
  Receive Date: 20090612
  Receipt Date: 20090511
  Transmission Date: 20091009
  Serious: No
  Sender: FDA-Public Use
  Company Number: US-ABBOTT-09P-163-0572775-00

PATIENT
  Sex: Female
  Weight: 54.934 kg

DRUGS (3)
  1. HUMIRA [Suspect]
     Indication: PSORIATIC ARTHROPATHY
     Route: 058
     Dates: start: 20060101, end: 20060101
  2. HUMIRA [Suspect]
     Dosage: PRE-FILLED SYRINGE, 1 IN  10 DAYS
     Route: 058
     Dates: start: 20060101, end: 20060101
  3. HUMIRA [Suspect]
     Dosage: PRE-FILLED SYRINGE, 1 IN  10 DAYS
     Route: 058
     Dates: start: 20060101

REACTIONS (1)
  - INJECTION SITE PAIN [None]
